FAERS Safety Report 6057160-9 (Version None)
Quarter: 2009Q1

REPORT INFORMATION
  Report Type: 
  Country: None (occurrence: None)
  Receive Date: 20090129
  Receipt Date: 20071218
  Transmission Date: 20090719
  Serious: No
  Sender: FDA-Public Use
  Company Number: A0699453A

PATIENT
  Age: 60 Year
  Sex: Female

DRUGS (6)
  1. WELLBUTRIN [Suspect]
     Indication: DRUG USE FOR UNKNOWN INDICATION
     Route: 065
  2. EQUATE NTS 21MG [Suspect]
     Dosage: 21MG UNKNOWN
     Route: 062
     Dates: start: 20071213
  3. COMMIT [Suspect]
     Indication: SMOKING CESSATION THERAPY
     Route: 002
  4. HORMONES [Concomitant]
  5. SLEEPING PILLS [Concomitant]
  6. XANAX [Concomitant]

REACTIONS (6)
  - DRY MOUTH [None]
  - INTENTIONAL DRUG MISUSE [None]
  - NICOTINE DEPENDENCE [None]
  - POOR QUALITY SLEEP [None]
  - STOMATITIS [None]
  - TERMINAL INSOMNIA [None]
